FAERS Safety Report 21769243 (Version 2)
Quarter: 2023Q1

REPORT INFORMATION
  Report Type: Report from Study
  Country: US (occurrence: US)
  Receive Date: 20221223
  Receipt Date: 20230130
  Transmission Date: 20230417
  Serious: No
  Sender: FDA-Public Use
  Company Number: US-ACADIA PHARMACEUTICALS INC.-ACA-2022-PIM-004169

PATIENT
  Age: 71 Year
  Sex: Male

DRUGS (16)
  1. NUPLAZID [Suspect]
     Active Substance: PIMAVANSERIN TARTRATE
     Indication: Parkinson^s disease psychosis
     Dosage: 34 MILLIGRAM, QD
     Route: 065
     Dates: end: 20221210
  2. NUPLAZID [Suspect]
     Active Substance: PIMAVANSERIN TARTRATE
     Indication: Parkinson^s disease
     Dosage: 34 MILLIGRAM, QD
     Route: 048
     Dates: start: 20230105, end: 202301
  3. CARBIDOPA LEVODOPA [Concomitant]
     Active Substance: CARBIDOPA\LEVODOPA
  4. COMTAN [Concomitant]
     Active Substance: ENTACAPONE
  5. METFORMIN [Concomitant]
     Active Substance: METFORMIN HYDROCHLORIDE
  6. LIPITOR [Concomitant]
     Active Substance: ATORVASTATIN CALCIUM
  7. LOVASTATIN [Concomitant]
     Active Substance: LOVASTATIN
  8. AMBIEN [Concomitant]
     Active Substance: ZOLPIDEM TARTRATE
  9. VICODIN [Concomitant]
     Active Substance: ACETAMINOPHEN\HYDROCODONE BITARTRATE
  10. BACLOFEN [Concomitant]
     Active Substance: BACLOFEN
  11. GABAPENTIN [Concomitant]
     Active Substance: GABAPENTIN
  12. CELEBREX [Concomitant]
     Active Substance: CELECOXIB
  13. ASPIRIN [Concomitant]
     Active Substance: ASPIRIN
  14. AMITIZA [Concomitant]
     Active Substance: LUBIPROSTONE
  15. LINZESS [Concomitant]
     Active Substance: LINACLOTIDE
  16. PEPCID [Concomitant]
     Active Substance: FAMOTIDINE

REACTIONS (5)
  - Paranoia [Unknown]
  - Paranoia [Unknown]
  - Post-traumatic stress disorder [Unknown]
  - Agitation [Unknown]
  - Drug ineffective [Not Recovered/Not Resolved]

NARRATIVE: CASE EVENT DATE: 20221201
